FAERS Safety Report 7596798 (Version 7)
Quarter: 2013Q3

REPORT INFORMATION
  Report Type: Spontaneous
  Country: US (occurrence: US)
  Receive Date: 20100920
  Receipt Date: 20130809
  Transmission Date: 20140515
  Serious: Yes (Hospitalization, Other)
  Sender: FDA-Public Use
  Company Number: US-ROCHE-701323

PATIENT
  Age: 22 Year
  Sex: Male
  Weight: 56.7 kg

DRUGS (3)
  1. ACCUTANE [Suspect]
     Indication: ACNE
     Route: 065
  2. ACCUTANE [Suspect]
     Route: 065
     Dates: start: 19990309, end: 199906
  3. CLEOCIN [Concomitant]

REACTIONS (8)
  - Colitis [Unknown]
  - Gastrointestinal injury [Unknown]
  - Suicidal ideation [Unknown]
  - Inflammatory bowel disease [Unknown]
  - Depression [Unknown]
  - Rash [Unknown]
  - Cheilitis [Unknown]
  - Xerosis [Unknown]
